FAERS Safety Report 5514734-9 (Version None)
Quarter: 2007Q4

REPORT INFORMATION
  Report Type: 
  Country: None (occurrence: None)
  Receive Date: 20071113
  Receipt Date: 20071101
  Transmission Date: 20080405
  Serious: Yes (Other)
  Sender: FDA-Public Use
  Company Number: US-PFIZER INC-2007094187

PATIENT
  Sex: Male
  Weight: 95.3 kg

DRUGS (1)
  1. CHANTIX [Suspect]
     Indication: SMOKING CESSATION THERAPY

REACTIONS (9)
  - DYSURIA [None]
  - ENURESIS [None]
  - FALL [None]
  - FEELING ABNORMAL [None]
  - HAEMORRHAGE [None]
  - HYPOKINESIA [None]
  - INJURY [None]
  - NIGHTMARE [None]
  - SOMNAMBULISM [None]
